FAERS Safety Report 5078881-0 (Version None)
Quarter: 2006Q3

REPORT INFORMATION
  Report Type: 
  Country: None (occurrence: None)
  Receive Date: 20060809
  Receipt Date: 20060727
  Transmission Date: 20061208
  Serious: No
  Sender: FDA-Public Use
  Company Number: B0433140A

PATIENT

DRUGS (1)
  1. CEFAZOLIN [Suspect]
     Dosage: 1 GRAM(S) INTRAVENOUS
     Route: 042

REACTIONS (3)
  - ANAPHYLACTIC REACTION [None]
  - CARDIAC ARREST [None]
  - LOSS OF CONSCIOUSNESS [None]
